FAERS Safety Report 4936220-7 (Version None)
Quarter: 2006Q1

REPORT INFORMATION
  Report Type: 
  Country: None (occurrence: None)
  Receive Date: 20060307
  Receipt Date: 20051201
  Transmission Date: 20060701
  Serious: No
  Sender: FDA-Public Use
  Company Number: US-GLAXOSMITHKLINE-A0585388A

PATIENT
  Age: 52 Year
  Sex: Female

DRUGS (4)
  1. REQUIP [Suspect]
     Indication: RESTLESS LEGS SYNDROME
     Dosage: 2MG FOUR TIMES PER DAY
     Route: 048
  2. MIRAPEX [Concomitant]
  3. KLONOPIN [Concomitant]
  4. NEURONTIN [Concomitant]

REACTIONS (2)
  - COUGH [None]
  - NAUSEA [None]
